FAERS Safety Report 4364852-6 (Version None)
Quarter: 2004Q2

REPORT INFORMATION
  Report Type: 
  Country: None (occurrence: None)
  Receive Date: 20040526
  Receipt Date: 20040517
  Transmission Date: 20050107
  Serious: Yes (Other)
  Sender: FDA-Public Use
  Company Number: 200415161GDDC

PATIENT
  Age: 40 Year
  Sex: Male

DRUGS (2)
  1. ALLEGRA [Suspect]
     Indication: CHRONIC SINUSITIS
     Route: 048
  2. AMBROXYL [Concomitant]
     Route: 048

REACTIONS (3)
  - HAEMORRHAGE SUBCUTANEOUS [None]
  - LEUKOPENIA [None]
  - PETECHIAE [None]
